FAERS Safety Report 14751730 (Version 1)
Quarter: 2018Q2

REPORT INFORMATION
  Report Type: Report from Study
  Country: US (occurrence: US)
  Receive Date: 20180412
  Receipt Date: 20180412
  Transmission Date: 20180711
  Serious: Yes (Hospitalization, Other)
  Sender: FDA-Public Use
  Company Number: US-B.I. PHARMACEUTICALS,INC./RIDGEFIELD-2018-BI-019128

PATIENT
  Age: 59 Year
  Sex: Male
  Weight: 115 kg

DRUGS (1)
  1. JARDIANCE [Suspect]
     Active Substance: EMPAGLIFLOZIN
     Indication: TYPE 2 DIABETES MELLITUS
     Route: 048
     Dates: start: 2015

REACTIONS (12)
  - Pulmonary oedema [Recovered/Resolved]
  - Oxygen saturation decreased [Not Recovered/Not Resolved]
  - Upper respiratory tract infection [Not Recovered/Not Resolved]
  - Abnormal loss of weight [Not Recovered/Not Resolved]
  - Blood glucose fluctuation [Unknown]
  - Staphylococcal sepsis [Recovered/Resolved]
  - Cellulitis [Recovered/Resolved]
  - Intervertebral disc protrusion [Recovered/Resolved]
  - Oxygen saturation decreased [Recovered/Resolved]
  - Pneumothorax [Unknown]
  - Hepatic cirrhosis [Not Recovered/Not Resolved]
  - Localised infection [Recovered/Resolved]

NARRATIVE: CASE EVENT DATE: 2015
